FAERS Safety Report 5414855-5 (Version None)
Quarter: 2007Q3

REPORT INFORMATION
  Report Type: 
  Country: None (occurrence: None)
  Receive Date: 20070815
  Receipt Date: 20070808
  Transmission Date: 20080115
  Serious: Yes (Other)
  Sender: FDA-Public Use
  Company Number: PHNU2007DE02778

PATIENT
  Age: 73 Year
  Sex: Female
  Weight: 85 kg

DRUGS (2)
  1. PAMIDRONATE DISODIUM [Suspect]
     Indication: METASTASES TO BONE
     Dosage: 90 MG, QMO
     Route: 065
     Dates: start: 20060601
  2. ZOMETA [Suspect]
     Indication: METASTASES TO BONE
     Dosage: 4 MG, QMO
     Route: 042
     Dates: start: 20050601, end: 20060501

REACTIONS (10)
  - ACTINOMYCOSIS [None]
  - BIOPSY BONE ABNORMAL [None]
  - ORAL SURGERY [None]
  - OSTEONECROSIS [None]
  - OSTEOTOMY [None]
  - PERIODONTITIS [None]
  - PRIMARY SEQUESTRUM [None]
  - SCINTIGRAPHY [None]
  - SINGLE PHOTON EMISSION COMPUTERISED TOMOGRAM ABNORMAL [None]
  - TOOTH EXTRACTION [None]
